FAERS Safety Report 6992980-5 (Version None)
Quarter: 2010Q3

REPORT INFORMATION
  Report Type: 
  Country: None (occurrence: None)
  Receive Date: 20100917
  Receipt Date: 20100915
  Transmission Date: 20110219
  Serious: Yes (Life-Threatening)
  Sender: FDA-Public Use
  Company Number: DE-BRISTOL-MYERS SQUIBB COMPANY-14950059

PATIENT
  Age: 73 Year
  Sex: Male
  Weight: 84 kg

DRUGS (3)
  1. CETUXIMAB [Suspect]
     Indication: NON-SMALL CELL LUNG CANCER
     Dosage: GIVEN ON 19JAN2010. CETUXIMAB 5MG/ML
     Route: 042
     Dates: start: 20100112
  2. CISPLATIN FOR INJ [Suspect]
     Indication: NON-SMALL CELL LUNG CANCER
     Dosage: DOSE FREQUENCY: DAY1 OF 21 DAY CYCLE.
     Route: 042
     Dates: start: 20100112
  3. VINORELBINE [Suspect]
     Indication: NON-SMALL CELL LUNG CANCER
     Dosage: INTERRUPTED ON 12JAN10 DOSE FREQUENCY:DAYS 1,8 OF 21 DAY CYCLE.
     Route: 042
     Dates: start: 20100112

REACTIONS (1)
  - ISCHAEMIC STROKE [None]
